FAERS Safety Report 6625363-8 (Version None)
Quarter: 2010Q1

REPORT INFORMATION
  Report Type: 
  Country: None (occurrence: None)
  Receive Date: 20100310
  Receipt Date: 20090819
  Transmission Date: 20100710
  Serious: No
  Sender: FDA-Public Use
  Company Number: US-BIOGENIDEC-2009BI026673

PATIENT
  Age: 30 Year
  Sex: Female

DRUGS (4)
  1. AVONEX [Suspect]
     Indication: MULTIPLE SCLEROSIS
     Route: 030
     Dates: start: 20030401, end: 20030401
  2. AVONEX [Suspect]
     Route: 030
     Dates: start: 20030401, end: 20030401
  3. AVONEX [Suspect]
     Route: 030
     Dates: start: 20030401, end: 20030401
  4. AVONEX [Suspect]
     Route: 030
     Dates: start: 20030401, end: 20030601

REACTIONS (1)
  - DISSOCIATION [None]
